FAERS Safety Report 7572219-2 (Version None)
Quarter: 2011Q2

REPORT INFORMATION
  Report Type: 
  Country: None (occurrence: None)
  Receive Date: 20110624
  Receipt Date: 20110613
  Transmission Date: 20111010
  Serious: Yes (Hospitalization, Other)
  Sender: FDA-Public Use
  Company Number: PHHY2011BR31823

PATIENT
  Age: 58 Year
  Sex: Male

DRUGS (10)
  1. HYDROCHLOROTHIAZIDE [Concomitant]
     Dosage: UNK
  2. GLIFAGE XR [Concomitant]
     Dosage: 500 MG
  3. MYFORTIC [Suspect]
     Dosage: 360 MG
  4. INSULIN [Concomitant]
     Dosage: UNK
  5. OMEPRAZOLE [Concomitant]
     Dosage: 40 MG
  6. CARVEDILOL [Concomitant]
     Dosage: UNK
  7. METOCLOPRAMIDE HYDROCHLORIDE [Concomitant]
     Dosage: UNK
     Route: 042
  8. PREDNISONE [Concomitant]
     Dosage: 10 MG
  9. FUROSEMIDE [Concomitant]
     Dosage: 40 MG
  10. DIGOXIN [Concomitant]
     Dosage: 0.25 MG

REACTIONS (2)
  - RENAL FAILURE [None]
  - DIABETES MELLITUS [None]
